FAERS Safety Report 21363262 (Version 2)
Quarter: 2022Q3

REPORT INFORMATION
  Report Type: Spontaneous
  Country: US (occurrence: US)
  Receive Date: 20220922
  Receipt Date: 20220928
  Transmission Date: 20221026
  Serious: No
  Sender: FDA-Public Use
  Company Number: US-BIOGEN-2022BI01156516

PATIENT
  Sex: Male

DRUGS (1)
  1. TECFIDERA [Suspect]
     Active Substance: DIMETHYL FUMARATE
     Indication: Multiple sclerosis
     Dosage: DIMETHYL FUMARATE 120MG
     Route: 050

REACTIONS (7)
  - Gastrointestinal disorder [Unknown]
  - Abdominal distension [Unknown]
  - Flatulence [Unknown]
  - Defaecation urgency [Unknown]
  - Anal incontinence [Unknown]
  - Diarrhoea [Unknown]
  - Abdominal pain [Unknown]
